FAERS Safety Report 9376164 (Version 1)
Quarter: 2013Q3

REPORT INFORMATION
  Report Type: Spontaneous
  Country: BG (occurrence: BG)
  Receive Date: 20130701
  Receipt Date: 20130701
  Transmission Date: 20140515
  Serious: Yes (Other)
  Sender: FDA-Public Use
  Company Number: PHHY2013BG066955

PATIENT
  Sex: Male

DRUGS (1)
  1. XORIMAX [Suspect]
     Indication: NASOPHARYNGITIS

REACTIONS (3)
  - Pain [Unknown]
  - Contusion [Unknown]
  - Rash [Unknown]
